FAERS Safety Report 8154319-1 (Version None)
Quarter: 2012Q1

REPORT INFORMATION
  Report Type: 
  Country: None (occurrence: None)
  Receive Date: 20120103
  Receipt Date: 20110902
  Transmission Date: 20120608
  Serious: No
  Sender: FDA-Public Use
  Company Number: AE-2011-001005

PATIENT
  Age: 44 Year

DRUGS (3)
  1. INCIVEK [Suspect]
     Dosage: 1125 MG (375 MG,3 IN 1 D)
  2. PEGINTERFERON ALFA-2A [Concomitant]
  3. RIBAVIRIN [Concomitant]

REACTIONS (1)
  - UNDERDOSE [None]
